FAERS Safety Report 14721344 (Version 1)
Quarter: 2018Q2

REPORT INFORMATION
  Report Type: Spontaneous
  Country: DE (occurrence: DE)
  Receive Date: 20180405
  Receipt Date: 20180405
  Transmission Date: 20180711
  Serious: Yes (Hospitalization)
  Sender: FDA-Public Use
  Company Number: DE-DSJP-DSE-2018-113116

PATIENT

DRUGS (6)
  1. DIGIMERCK [Concomitant]
     Active Substance: DIGITOXIN
     Indication: ARRHYTHMIA
     Dosage: 0.07 UNK, UNK
     Dates: start: 201708
  2. TILIDIN [Concomitant]
     Active Substance: NALOXONE HYDROCHLORIDE\TILIDINE HYDROCHLORIDE
     Indication: PAIN
  3. L-THYROX HEXAL [Concomitant]
     Active Substance: LEVOTHYROXINE SODIUM
     Indication: PRODUCT USED FOR UNKNOWN INDICATION
     Dosage: 88 UNK, UNK
  4. LIXIANA [Suspect]
     Active Substance: EDOXABAN TOSYLATE
     Indication: ARRHYTHMIA
     Dosage: 30 UNK, UNK
     Dates: start: 201801
  5. LIXIANA [Suspect]
     Active Substance: EDOXABAN TOSYLATE
     Indication: ATRIAL FIBRILLATION
     Dosage: 15 MG, QD
     Route: 048
     Dates: start: 201708, end: 20180101
  6. FUROSEMID                          /00032601/ [Concomitant]
     Active Substance: FUROSEMIDE
     Indication: PRODUCT USED FOR UNKNOWN INDICATION

REACTIONS (10)
  - Alopecia [Unknown]
  - Dermatitis [Unknown]
  - Wrong technique in product usage process [Not Recovered/Not Resolved]
  - Spinal column injury [Unknown]
  - Oedema peripheral [Unknown]
  - Eye swelling [Unknown]
  - Dizziness [Unknown]
  - Underdose [Not Recovered/Not Resolved]
  - Tympanic membrane perforation [Unknown]
  - Haematoma [Unknown]

NARRATIVE: CASE EVENT DATE: 2017
